FAERS Safety Report 9110868 (Version 1)
Quarter: 2013Q1

REPORT INFORMATION
  Report Type: Spontaneous
  Country: US (occurrence: US)
  Receive Date: 20130219
  Receipt Date: 20130219
  Transmission Date: 20140127
  Serious: Yes (Other)
  Sender: FDA-Public Use
  Company Number: US-BRISTOL-MYERS SQUIBB COMPANY-16720328

PATIENT
  Age: 55 Year
  Sex: Female

DRUGS (1)
  1. ORENCIA [Suspect]
     Dosage: LAST DOSE ON: 30-MAY-2012.
     Route: 042
     Dates: start: 20120530

REACTIONS (3)
  - Headache [Unknown]
  - Chills [Unknown]
  - Pyrexia [Unknown]
